FAERS Safety Report 8090442-8 (Version None)
Quarter: 2012Q1

REPORT INFORMATION
  Report Type: 
  Country: None (occurrence: None)
  Receive Date: 20120129
  Receipt Date: 20111202
  Transmission Date: 20120608
  Serious: No
  Sender: FDA-Public Use
  Company Number: US-ABBOTT-11P-163-0879943-00

PATIENT
  Sex: Female
  Weight: 81.72 kg

DRUGS (13)
  1. CALCIUM [Concomitant]
     Indication: PRODUCT USED FOR UNKNOWN INDICATION
     Route: 048
     Dates: start: 20090423, end: 20100206
  2. SULFASALAZINE [Concomitant]
     Route: 048
     Dates: start: 20091116, end: 20091122
  3. SULFASALAZINE [Concomitant]
     Indication: RHEUMATOID ARTHRITIS
     Route: 048
     Dates: start: 20091109, end: 20091115
  4. HUMIRA [Suspect]
     Indication: RHEUMATOID ARTHRITIS
     Route: 050
     Dates: start: 20090423, end: 20090824
  5. HUMIRA [Suspect]
     Dosage: 1.3 MONTHLY
     Route: 050
     Dates: start: 20090914, end: 20091012
  6. LOVAZA [Concomitant]
     Indication: PRODUCT USED FOR UNKNOWN INDICATION
     Dosage: 3 PILLS DAILY
     Route: 048
     Dates: start: 20090423, end: 20100206
  7. SULFASALAZINE [Concomitant]
     Route: 048
     Dates: start: 20091130, end: 20100103
  8. MULTI-VITAMINS [Concomitant]
     Indication: PRODUCT USED FOR UNKNOWN INDICATION
     Dosage: 3 PILLS DAILY
     Route: 048
     Dates: start: 20090423, end: 20100206
  9. CRANBERRY [Concomitant]
     Indication: PRODUCT USED FOR UNKNOWN INDICATION
     Dosage: 2 PILLS X 3.5 WEEKLY
     Route: 048
     Dates: start: 20090914, end: 20091031
  10. SULFASALAZINE [Concomitant]
     Route: 048
     Dates: start: 20091123, end: 20091129
  11. CRANBERRY [Concomitant]
     Dosage: 2 PILLS IN ONE WEEK
     Route: 048
     Dates: start: 20091101, end: 20100206
  12. INFLUENZA VACCINE [Concomitant]
     Indication: INFLUENZA IMMUNISATION
     Route: 050
     Dates: start: 20091102, end: 20091102
  13. SULFASALAZINE [Concomitant]
     Route: 048
     Dates: start: 20100104, end: 20100114

REACTIONS (4)
  - DYSPEPSIA [None]
  - STREPTOCOCCUS TEST POSITIVE [None]
  - NASOPHARYNGITIS [None]
  - PRURITUS [None]
